FAERS Safety Report 5673211-5 (Version None)
Quarter: 2008Q1

REPORT INFORMATION
  Report Type: 
  Country: None (occurrence: None)
  Receive Date: 20080319
  Receipt Date: 20080311
  Transmission Date: 20080703
  Serious: Yes (Hospitalization, Other)
  Sender: FDA-Public Use
  Company Number: AU-BAUSCH-2008BL001119

PATIENT
  Age: 79 Year
  Sex: Female

DRUGS (4)
  1. TOBRAMYCIN [Suspect]
     Indication: POSTOPERATIVE CARE
     Route: 047
  2. PHENYLEPHRINE HYDROCHLORIDE [Concomitant]
     Indication: POSTOPERATIVE CARE
     Route: 047
  3. PREDNISOLONE ACETATE [Concomitant]
     Indication: POSTOPERATIVE CARE
     Route: 047
  4. CEFAZOLIN [Concomitant]
     Indication: ANTI-INFECTIVE THERAPY
     Route: 031

REACTIONS (1)
  - ANAPHYLACTIC REACTION [None]
